FAERS Safety Report 9360225 (Version 1)
Quarter: 2013Q2

REPORT INFORMATION
  Report Type: Spontaneous
  Country: US (occurrence: US)
  Receive Date: 20130621
  Receipt Date: 20130621
  Transmission Date: 20140414
  Serious: No
  Sender: FDA-Public Use
  Company Number: US-ASTRAZENECA-2013SE42840

PATIENT
  Sex: Female

DRUGS (2)
  1. SYMBICORT [Suspect]
     Dosage: ON UNKNOWN FREQUENCY
     Route: 055
  2. XOPANEX [Suspect]
     Route: 065

REACTIONS (2)
  - Gastrooesophageal reflux disease [Unknown]
  - Burning sensation [Unknown]
